FAERS Safety Report 13354885 (Version 2)
Quarter: 2017Q1

REPORT INFORMATION
  Report Type: Spontaneous
  Country: AT (occurrence: AT)
  Receive Date: 20170321
  Receipt Date: 20170327
  Transmission Date: 20170429
  Serious: Yes (Hospitalization)
  Sender: FDA-Public Use
  Company Number: AT-FERRINGPH-2017FE01119

PATIENT

DRUGS (12)
  1. BLOPRESS [Concomitant]
     Active Substance: CANDESARTAN CILEXETIL
     Indication: HYPERTENSION
     Dosage: 8 MG, 1 TIME DAILY (1-0-0-0)
     Route: 065
  2. AMLODIPIN 1A PHARMA GMBH [Concomitant]
     Indication: HYPERTENSION
     Dosage: 5 MG, 2 TIMES DAILY (1-0-1-0)
     Route: 065
  3. THROMBO ASS [Concomitant]
     Active Substance: ASPIRIN
     Indication: CORONARY ARTERY DISEASE
     Dosage: 100 MG, 1 TIME DAILY (1-0-0-0)
     Route: 065
  4. ATORVASTATIN 1A PHARMA [Concomitant]
     Indication: HYPERLIPIDAEMIA
     Dosage: 10 MG, 1 TIME DAILY (0-0-1-0)
     Route: 065
  5. HALCION [Concomitant]
     Active Substance: TRIAZOLAM
     Indication: INITIAL INSOMNIA
     Dosage: 0.25 MG, 1 TIME DAILY (0-0-0-1)
     Route: 065
  6. PANTOLOC                           /01263204/ [Concomitant]
     Active Substance: PANTOPRAZOLE SODIUM
     Indication: PROPHYLAXIS AGAINST GASTROINTESTINAL ULCER
     Dosage: 40 MG, 1 TIME DAILY (1-0-0-0)
     Route: 065
  7. PICOPREP [Suspect]
     Active Substance: ANHYDROUS CITRIC ACID\MAGNESIUM OXIDE\SODIUM PICOSULFATE
     Indication: BOWEL PREPARATION
     Dosage: 1 SACHET IN 1 GLASS WATER
     Route: 065
     Dates: start: 20170130
  8. ELIQUIS [Concomitant]
     Active Substance: APIXABAN
     Indication: ATRIAL FIBRILLATION
     Dosage: 2.5 MG, 1 TIME DAILY (0-0-1-0)
     Route: 065
  9. THYREX [Concomitant]
     Active Substance: LEVOTHYROXINE SODIUM
     Indication: THYROIDECTOMY
     Dosage: 100 ?G, 1 TIME DAILY (1-0-0-0)
     Route: 065
  10. VASTAREL [Concomitant]
     Active Substance: TRIMETAZIDINE DIHYDROCHLORIDE
     Indication: CORONARY ARTERY DISEASE
     Dosage: 35 MG, 2 TIMES DAILY (1-0-1-0)
     Route: 065
  11. NEURONTIN [Concomitant]
     Active Substance: GABAPENTIN
     Indication: POLYNEUROPATHY
     Dosage: 300 MG, 2 TIMES DAILY (1-0-1-0)
     Route: 065
  12. NOMEXOR [Concomitant]
     Active Substance: NEBIVOLOL HYDROCHLORIDE
     Indication: HYPERTENSION
     Dosage: 2.5 MG, 1 TIME DAILY (0-0-?-0)
     Route: 065

REACTIONS (8)
  - Slow speech [Recovered/Resolved]
  - Asthenia [Recovered/Resolved]
  - Treatment noncompliance [Recovered/Resolved]
  - General physical health deterioration [Recovered/Resolved]
  - Hyponatraemia [Recovered/Resolved]
  - Nausea [Recovered/Resolved]
  - Vomiting [Recovered/Resolved]
  - Tremor [Recovered/Resolved]

NARRATIVE: CASE EVENT DATE: 20170130
